FAERS Safety Report 9138065 (Version 3)
Quarter: 2013Q2

REPORT INFORMATION
  Report Type: Spontaneous
  Country: US (occurrence: US)
  Receive Date: 20130304
  Receipt Date: 20130401
  Transmission Date: 20140414
  Serious: Yes (Hospitalization, Other)
  Sender: FDA-Public Use
  Company Number: CHPA2013US003692

PATIENT
  Age: 53 Year
  Sex: Female

DRUGS (1)
  1. GAS-X [Suspect]
     Indication: DYSPEPSIA
     Dosage: 2 TO 4 DF, PRN
     Route: 048

REACTIONS (4)
  - Dyspepsia [Recovered/Resolved]
  - Hiatus hernia [Not Recovered/Not Resolved]
  - Therapeutic response unexpected [Unknown]
  - Off label use [Unknown]
